FAERS Safety Report 11089046 (Version 2)
Quarter: 2015Q2

REPORT INFORMATION
  Report Type: Spontaneous
  Country: DE (occurrence: DE)
  Receive Date: 20150505
  Receipt Date: 20150512
  Transmission Date: 20150821
  Serious: Yes (Hospitalization, Other)
  Sender: FDA-Public Use
  Company Number: DE-CIPLA LTD.-2015DE03464

PATIENT

DRUGS (4)
  1. CISPLATIN. [Suspect]
     Active Substance: CISPLATIN
     Indication: PANCREATIC NEOPLASM
     Dosage: 25 MG/M2  ON DAYS 1 AND 8 OF A 22-DAY CYCLE
  2. CISPLATIN. [Suspect]
     Active Substance: CISPLATIN
     Indication: METASTASES TO LIVER
  3. GEMCITABINE [Suspect]
     Active Substance: GEMCITABINE\GEMCITABINE HYDROCHLORIDE
     Indication: PANCREATIC NEOPLASM
     Dosage: 1000 MG/M2 ON DAYS 1 AND 8 OF A 22-DAY CYCLE
  4. GEMCITABINE [Suspect]
     Active Substance: GEMCITABINE\GEMCITABINE HYDROCHLORIDE
     Indication: METASTASES TO LIVER

REACTIONS (4)
  - Disease progression [Unknown]
  - Drug ineffective [Unknown]
  - Metastases to liver [Recovered/Resolved]
  - Leukopenia [Recovered/Resolved]
